FAERS Safety Report 10215087 (Version 1)
Quarter: 2014Q2

REPORT INFORMATION
  Report Type: Spontaneous
  Country: US (occurrence: US)
  Receive Date: 20140603
  Receipt Date: 20140603
  Transmission Date: 20141212
  Serious: No
  Sender: FDA-Public Use
  Company Number: US-B.I. PHARMACEUTICALS,INC./RIDGEFIELD-2014-BI-22893BP

PATIENT
  Age: 62 Year
  Sex: Female
  Weight: 125 kg

DRUGS (5)
  1. PRADAXA [Suspect]
     Indication: ATRIAL FIBRILLATION
     Dosage: 300 MG
     Route: 048
     Dates: start: 20140521
  2. LISINOPRIL [Concomitant]
     Indication: HYPERTENSION
     Dosage: 20 MG
     Route: 048
  3. ATENOLOL [Concomitant]
     Indication: HEART RATE INCREASED
     Dosage: 40 MG
     Route: 048
  4. SPIRONOLACTONE [Concomitant]
     Indication: HYPERTENSION
     Dosage: 25 MG
     Route: 048
  5. WELLBUTRIN [Concomitant]
     Indication: ANXIETY
     Dosage: 50 MG
     Route: 048

REACTIONS (1)
  - Palpitations [Recovered/Resolved]
